FAERS Safety Report 8968385 (Version 1)
Quarter: 2012Q4

REPORT INFORMATION
  Report Type: 
  Country: US (occurrence: US)
  Receive Date: 20121218
  Receipt Date: 20121218
  Transmission Date: 20130627
  Serious: Yes (Hospitalization)
  Sender: FDA-Public Use
  Company Number: US-BRISTOL-MYERS SQUIBB COMPANY-16770018

PATIENT
  Age: 91 Year
  Sex: Male

DRUGS (2)
  1. ABILIFY [Suspect]
     Dosage: Dose increased from 5mg,20mg to 25mg
but taking 10mg
  2. LITHIUM [Suspect]
     Dosage: Dose decreased to 1 per 1day.

REACTIONS (2)
  - Somnolence [Not Recovered/Not Resolved]
  - Hepatic enzyme increased [Unknown]
